FAERS Safety Report 4992877-6 (Version None)
Quarter: 2006Q2

REPORT INFORMATION
  Report Type: 
  Country: None (occurrence: None)
  Receive Date: 20060504
  Receipt Date: 20050912
  Transmission Date: 20061013
  Serious: Yes (Hospitalization)
  Sender: FDA-Public Use
  Company Number: US-MERCK-0510USA07362

PATIENT
  Age: 70 Year
  Sex: Female
  Weight: 105 kg

DRUGS (6)
  1. VIOXX [Suspect]
     Indication: ARTHRITIS
     Route: 048
     Dates: start: 20000616, end: 20040701
  2. TOPROL-XL [Concomitant]
     Route: 048
     Dates: start: 20050101, end: 20060119
  3. ASPIRIN [Concomitant]
     Route: 048
     Dates: end: 20060119
  4. PLAVIX [Concomitant]
     Route: 065
     Dates: start: 20020221, end: 20020328
  5. LIPITOR [Concomitant]
     Route: 065
     Dates: start: 20040320, end: 20060119
  6. FLEXEN (NAPROXEN) [Concomitant]
     Route: 065
     Dates: end: 20060119

REACTIONS (4)
  - CARDIAC FAILURE CONGESTIVE [None]
  - HYPERTENSION [None]
  - MYOCARDIAL INFARCTION [None]
  - RENAL DISORDER [None]
